FAERS Safety Report 8458529 (Version 3)
Quarter: 2014Q2

REPORT INFORMATION
  Report Type: Spontaneous
  Country: US (occurrence: US)
  Receive Date: 20120314
  Receipt Date: 20140604
  Transmission Date: 20141212
  Serious: Yes (Hospitalization)
  Sender: FDA-Public Use
  Company Number: US-GLAXOSMITHKLINE-A0935806A

PATIENT
  Age: 60 Year
  Sex: Female
  Weight: 75.5 kg

DRUGS (1)
  1. AVANDIA [Suspect]
     Indication: DIABETES MELLITUS
     Route: 048
     Dates: start: 2003, end: 2011

REACTIONS (4)
  - Cardiac failure congestive [Not Recovered/Not Resolved]
  - Cerebrovascular accident [Unknown]
  - Lung disorder [Unknown]
  - Blindness [Unknown]
